FAERS Safety Report 7910732-6 (Version None)
Quarter: 2011Q4

REPORT INFORMATION
  Report Type: 
  Country: None (occurrence: None)
  Receive Date: 20111112
  Receipt Date: 20111102
  Transmission Date: 20120403
  Serious: Yes (Other)
  Sender: FDA-Public Use
  Company Number: GB-ASTRAZENECA-2011SE41991

PATIENT
  Age: 68 Year
  Sex: Male
  Weight: 94 kg

DRUGS (4)
  1. ROSUVASTATIN [Suspect]
     Indication: HYPERCHOLESTEROLAEMIA
     Route: 048
     Dates: start: 20110315, end: 20110503
  2. ASPIRIN [Concomitant]
  3. FELODIPINE [Concomitant]
  4. CANDESARTAN CILEXETIL [Concomitant]

REACTIONS (3)
  - MYOPATHY [None]
  - RENAL IMPAIRMENT [None]
  - MUSCLE SPASMS [None]
